FAERS Safety Report 6962023-8 (Version None)
Quarter: 2010Q3

REPORT INFORMATION
  Report Type: 
  Country: None (occurrence: None)
  Receive Date: 20100902
  Receipt Date: 20100322
  Transmission Date: 20110219
  Serious: Yes (Hospitalization)
  Sender: FDA-Public Use
  Company Number: US-BAYER-200942908NA

PATIENT
  Age: 44 Year
  Sex: Female

DRUGS (3)
  1. YAZ [Suspect]
     Indication: MENSTRUATION IRREGULAR
     Dosage: 3 MG/0.03 MG/1 PER DAY
     Route: 048
     Dates: start: 20071122, end: 20080103
  2. CRESTOR [Concomitant]
     Indication: BLOOD CHOLESTEROL INCREASED
     Dates: start: 20070101
  3. VITAMIN D [Concomitant]
     Indication: MEDICAL DIET
     Dates: start: 20070101

REACTIONS (1)
  - DEEP VEIN THROMBOSIS [None]
